FAERS Safety Report 5132989-X (Version None)
Quarter: 2006Q4

REPORT INFORMATION
  Report Type: 
  Country: None (occurrence: None)
  Receive Date: 20061018
  Receipt Date: 20061009
  Transmission Date: 20070319
  Serious: Yes (Hospitalization)
  Sender: FDA-Public Use
  Company Number: FR-2006-001996

PATIENT
  Age: 39 Year
  Sex: Female
  Weight: 58 kg

DRUGS (1)
  1. MIRENA [Suspect]
     Indication: CONTRACEPTION
     Dosage: 20 UG/DAY, CONT, INTRA-UTERINE
     Route: 015
     Dates: start: 20011119, end: 20061002

REACTIONS (7)
  - ACNE [None]
  - AMENORRHOEA [None]
  - BONE PAIN [None]
  - BREAST PAIN [None]
  - CREST SYNDROME [None]
  - RAYNAUD'S PHENOMENON [None]
  - SCLERODERMA [None]
